FAERS Safety Report 7328508-X (Version None)
Quarter: 2011Q1

REPORT INFORMATION
  Report Type: 
  Country: None (occurrence: None)
  Receive Date: 20110225
  Receipt Date: 20110225
  Transmission Date: 20110831
  Serious: Yes (Other)
  Sender: FDA-Public Use
  Company Number: None

PATIENT
  Age: 37 Year
  Sex: Female

DRUGS (2)
  1. COMPAZINE [Suspect]
     Indication: GASTROINTESTINAL OBSTRUCTION
     Dosage: 5 MG PRN IV 4 DOSES
     Route: 042
     Dates: start: 20110208, end: 20110210
  2. REGLAN [Suspect]
     Dosage: 10MG 2 IV 2 DOSES
     Route: 042

REACTIONS (2)
  - NECK PAIN [None]
  - SWOLLEN TONGUE [None]
